FAERS Safety Report 18513297 (Version 2)
Quarter: 2020Q4

REPORT INFORMATION
  Report Type: Report from Study
  Country: None (occurrence: CH)
  Receive Date: 20201118
  Receipt Date: 20201207
  Transmission Date: 20210114
  Serious: Yes (Hospitalization)
  Sender: FDA-Public Use
  Company Number: CH-ABBVIE-20K-151-3613752-00

PATIENT
  Age: 74 Year
  Sex: Male

DRUGS (5)
  1. DUODOPA [Suspect]
     Active Substance: CARBIDOPA\LEVODOPA
     Indication: PARKINSON^S DISEASE
     Route: 050
     Dates: start: 201909, end: 201909
  2. MADOPAR [Concomitant]
     Active Substance: BENSERAZIDE HYDROCHLORIDE\LEVODOPA
     Indication: PRODUCT USED FOR UNKNOWN INDICATION
     Dates: start: 20201130
  3. DUODOPA [Suspect]
     Active Substance: CARBIDOPA\LEVODOPA
     Dosage: MD: 3,6ML CRD: 5,5ML/H  CRN: 4ML/H ED: 2,2ML?24H THERAPY
     Route: 050
     Dates: start: 201909, end: 20201012
  4. DUODOPA [Suspect]
     Active Substance: CARBIDOPA\LEVODOPA
     Dosage: MD 4.0ML, CRD 5.1ML/H, CRN 4.4ML/H, ED 2.3ML?24H THERAPY
     Route: 050
     Dates: start: 2020, end: 20201130
  5. DUODOPA [Suspect]
     Active Substance: CARBIDOPA\LEVODOPA
     Dosage: MD: 4ML CRD: 5,5ML/H  CRN: 4,4ML/H ED: 2,3ML; ED BLOCKING  TIME 2H?24H THERAPY
     Route: 050
     Dates: start: 20201012, end: 2020

REACTIONS (8)
  - Epilepsy [Unknown]
  - Wheelchair user [Not Recovered/Not Resolved]
  - Dyskinesia [Not Recovered/Not Resolved]
  - Loss of consciousness [Unknown]
  - Gait inability [Not Recovered/Not Resolved]
  - Restlessness [Not Recovered/Not Resolved]
  - Dementia [Not Recovered/Not Resolved]
  - Weight decreased [Not Recovered/Not Resolved]

NARRATIVE: CASE EVENT DATE: 202011
